FAERS Safety Report 25252155 (Version 2)
Quarter: 2025Q2

REPORT INFORMATION
  Report Type: Spontaneous
  Country: FR (occurrence: FR)
  Receive Date: 20250429
  Receipt Date: 20250626
  Transmission Date: 20250716
  Serious: Yes (Hospitalization)
  Sender: MYLAN
  Company Number: None

PATIENT
  Age: 32 Year
  Sex: Female
  Weight: 75 kg

DRUGS (20)
  1. VENLAFAXINE [Suspect]
     Active Substance: VENLAFAXINE HYDROCHLORIDE
     Indication: Depression
     Dosage: 75 MILLIGRAM, QD
     Dates: start: 202407
  2. VENLAFAXINE [Suspect]
     Active Substance: VENLAFAXINE HYDROCHLORIDE
     Dosage: 75 MILLIGRAM, QD
     Route: 048
     Dates: start: 202407
  3. VENLAFAXINE [Suspect]
     Active Substance: VENLAFAXINE HYDROCHLORIDE
     Dosage: 75 MILLIGRAM, QD
     Route: 048
     Dates: start: 202407
  4. VENLAFAXINE [Suspect]
     Active Substance: VENLAFAXINE HYDROCHLORIDE
     Dosage: 75 MILLIGRAM, QD
     Dates: start: 202407
  5. CYAMEMAZINE [Suspect]
     Active Substance: CYAMEMAZINE
     Indication: Mental disorder
     Dosage: 20 MILLIGRAM, QD
     Route: 048
     Dates: start: 202311, end: 202312
  6. CYAMEMAZINE [Suspect]
     Active Substance: CYAMEMAZINE
     Dosage: 20 MILLIGRAM, QD
     Dates: start: 202311, end: 202312
  7. CYAMEMAZINE [Suspect]
     Active Substance: CYAMEMAZINE
     Dosage: 20 MILLIGRAM, QD
     Dates: start: 202311, end: 202312
  8. CYAMEMAZINE [Suspect]
     Active Substance: CYAMEMAZINE
     Dosage: 20 MILLIGRAM, QD
     Route: 048
     Dates: start: 202311, end: 202312
  9. CYAMEMAZINE [Suspect]
     Active Substance: CYAMEMAZINE
     Dosage: 20 MILLIGRAM, QD
     Route: 048
     Dates: start: 202412, end: 20250408
  10. CYAMEMAZINE [Suspect]
     Active Substance: CYAMEMAZINE
     Dosage: 20 MILLIGRAM, QD
     Dates: start: 202412, end: 20250408
  11. CYAMEMAZINE [Suspect]
     Active Substance: CYAMEMAZINE
     Dosage: 20 MILLIGRAM, QD
     Dates: start: 202412, end: 20250408
  12. CYAMEMAZINE [Suspect]
     Active Substance: CYAMEMAZINE
     Dosage: 20 MILLIGRAM, QD
     Route: 048
     Dates: start: 202412, end: 20250408
  13. DIANE (CYPROTERONE ACETATE\ETHINYL ESTRADIOL) [Suspect]
     Active Substance: CYPROTERONE ACETATE\ETHINYL ESTRADIOL
     Indication: Product used for unknown indication
     Dosage: 21 DOSAGE FORM, MONTHLY
     Dates: start: 2011, end: 20250131
  14. DIANE (CYPROTERONE ACETATE\ETHINYL ESTRADIOL) [Suspect]
     Active Substance: CYPROTERONE ACETATE\ETHINYL ESTRADIOL
     Dosage: 21 DOSAGE FORM, MONTHLY
     Route: 048
     Dates: start: 2011, end: 20250131
  15. DIANE (CYPROTERONE ACETATE\ETHINYL ESTRADIOL) [Suspect]
     Active Substance: CYPROTERONE ACETATE\ETHINYL ESTRADIOL
     Dosage: 21 DOSAGE FORM, MONTHLY
     Route: 048
     Dates: start: 2011, end: 20250131
  16. DIANE (CYPROTERONE ACETATE\ETHINYL ESTRADIOL) [Suspect]
     Active Substance: CYPROTERONE ACETATE\ETHINYL ESTRADIOL
     Dosage: 21 DOSAGE FORM, MONTHLY
     Dates: start: 2011, end: 20250131
  17. OXAZEPAM [Suspect]
     Active Substance: OXAZEPAM
     Indication: Mental disorder
  18. OXAZEPAM [Suspect]
     Active Substance: OXAZEPAM
     Route: 048
  19. OXAZEPAM [Suspect]
     Active Substance: OXAZEPAM
     Route: 048
  20. OXAZEPAM [Suspect]
     Active Substance: OXAZEPAM

REACTIONS (1)
  - Pulmonary embolism [Recovered/Resolved]

NARRATIVE: CASE EVENT DATE: 20250131
